FAERS Safety Report 5300171-9 (Version None)
Quarter: 2007Q2

REPORT INFORMATION
  Report Type: 
  Country: None (occurrence: None)
  Receive Date: 20070411
  Receipt Date: 20070329
  Transmission Date: 20071010
  Serious: Yes (Other)
  Sender: FDA-Public Use
  Company Number: 2007SP006015

PATIENT
  Age: 56 Year
  Sex: Male
  Weight: 84.8226 kg

DRUGS (9)
  1. PEG-INTRON [Suspect]
     Indication: HEPATITIS C
     Dosage: SC
     Route: 058
     Dates: start: 20060317, end: 20070324
  2. RIBAVIRIN [Suspect]
     Indication: HEPATITIS C
     Dosage: PO
     Route: 048
     Dates: start: 20060317, end: 20070324
  3. AMLODIPINE BESY- BENAZEPRIL HCI (CON.) [Concomitant]
  4. BL-GLUCOSAMINE - CHONDROITIN (CON.) [Concomitant]
  5. FISH OIL (CON.) [Concomitant]
  6. LOTENSIN HCT (CON.) [Concomitant]
  7. MILK THISTLE (CON.) [Concomitant]
  8. NORVASC (CON.) [Concomitant]
  9. SM VITAMIN E (CON.) [Concomitant]

REACTIONS (7)
  - BLOOD POTASSIUM DECREASED [None]
  - FATIGUE [None]
  - LABORATORY TEST ABNORMAL [None]
  - MUSCLE ATROPHY [None]
  - PLATELET COUNT DECREASED [None]
  - WEIGHT DECREASED [None]
  - WHITE BLOOD CELL COUNT DECREASED [None]
